FAERS Safety Report 5050410-7 (Version None)
Quarter: 2006Q3

REPORT INFORMATION
  Report Type: 
  Country: None (occurrence: None)
  Receive Date: 20060707
  Receipt Date: 20060627
  Transmission Date: 20061208
  Serious: Yes (Other)
  Sender: FDA-Public Use
  Company Number: 2006US001371

PATIENT
  Sex: Female

DRUGS (5)
  1. AMBISOME [Suspect]
     Dosage: 3 MG/KG
  2. FLUCONAZOLE [Concomitant]
  3. TEICOPLANIN [Concomitant]
  4. CEFTRIAXONE [Concomitant]
  5. METRONIDAZOLE (METRONIDAZOLE SODIUM) [Concomitant]

REACTIONS (2)
  - FOAMING AT MOUTH [None]
  - SALIVARY HYPERSECRETION [None]
